FAERS Safety Report 13209172 (Version 1)
Quarter: 2017Q1

REPORT INFORMATION
  Report Type: Spontaneous
  Country: GB (occurrence: GB)
  Receive Date: 20170209
  Receipt Date: 20170209
  Transmission Date: 20170428
  Serious: Yes (Hospitalization)
  Sender: FDA-Public Use
  Company Number: GB-JNJFOC-20170204400

PATIENT
  Age: 52 Year
  Sex: Male

DRUGS (2)
  1. SECUKINUMAB [Suspect]
     Active Substance: SECUKINUMAB
     Indication: PSORIASIS
     Dosage: DOSE: 300 UNITS UNSPECIFIED
     Route: 058
     Dates: start: 20161105
  2. USTEKINUMAB [Suspect]
     Active Substance: USTEKINUMAB
     Indication: PRODUCT USED FOR UNKNOWN INDICATION
     Route: 058
     Dates: start: 20161206

REACTIONS (4)
  - Chromaturia [Unknown]
  - Pyelonephritis acute [Recovering/Resolving]
  - Flank pain [Unknown]
  - Malaise [Unknown]

NARRATIVE: CASE EVENT DATE: 20161212
